FAERS Safety Report 4710643-3 (Version None)
Quarter: 2005Q3

REPORT INFORMATION
  Report Type: 
  Country: None (occurrence: None)
  Receive Date: 20050707
  Receipt Date: 20050624
  Transmission Date: 20060218
  Serious: Yes (Death, Life-Threatening, Hospitalization)
  Sender: FDA-Public Use
  Company Number: HQWYE323226APR05

PATIENT
  Age: 75 Year
  Sex: Female

DRUGS (6)
  1. CORDARONE [Suspect]
     Indication: TACHYCARDIA PAROXYSMAL
     Dosage: 900 MG 1X PER 1 DAY INTRAVENOUS
     Route: 042
     Dates: start: 20050413, end: 20050415
  2. CLAFORAN [Concomitant]
  3. RANITIDINE HYDROCHLORIDE [Concomitant]
  4. ORGARAN [Concomitant]
  5. LASIX [Concomitant]
  6. NUTRIFLEX (AMINO ACIDS NOS/ELECTROLYTES NOS/GLUCOSE) [Concomitant]

REACTIONS (2)
  - CYTOLYTIC HEPATITIS [None]
  - MULTI-ORGAN FAILURE [None]
